FAERS Safety Report 5658265-4 (Version None)
Quarter: 2008Q1

REPORT INFORMATION
  Report Type: 
  Country: None (occurrence: None)
  Receive Date: 20080310
  Receipt Date: 20070115
  Transmission Date: 20080703
  Serious: No
  Sender: FDA-Public Use
  Company Number: US-BAYER-200710163BCC

PATIENT
  Age: 57 Year
  Sex: Female
  Weight: 91 kg

DRUGS (4)
  1. ALEVE [Suspect]
     Indication: MUSCULOSKELETAL PAIN
     Dosage: TOTAL DAILY DOSE: 440 MG  UNIT DOSE: 220 MG
     Route: 048
     Dates: start: 20070107, end: 20070109
  2. ALEVE [Suspect]
     Dosage: TOTAL DAILY DOSE: 440 MG  UNIT DOSE: 220 MG
     Route: 048
     Dates: start: 20070111
  3. MEDICATION FOR HIGH BLOOD PRESSURE [Concomitant]
  4. DIABETES [Concomitant]

REACTIONS (2)
  - FATIGUE [None]
  - INITIAL INSOMNIA [None]
